FAERS Safety Report 6371891-2 (Version None)
Quarter: 2009Q3

REPORT INFORMATION
  Report Type: 
  Country: None (occurrence: None)
  Receive Date: 20090918
  Receipt Date: 20090918
  Transmission Date: 20100115
  Serious: Yes (Other)
  Sender: FDA-Public Use
  Company Number: None

PATIENT
  Sex: Female
  Weight: 68.0396 kg

DRUGS (2)
  1. BONIVA [Suspect]
     Indication: OSTEOPENIA
     Dosage: 1 TABOET ONCE A MONTH PO
     Route: 048
     Dates: start: 20070315, end: 20090721
  2. BONIVA [Suspect]
     Indication: OSTEOPOROSIS
     Dosage: 1 TABOET ONCE A MONTH PO
     Route: 048
     Dates: start: 20070315, end: 20090721

REACTIONS (11)
  - ASTHENIA [None]
  - EYE INFLAMMATION [None]
  - GASTRIC DISORDER [None]
  - HEADACHE [None]
  - INFLAMMATION [None]
  - LYMPHADENOPATHY [None]
  - MUSCLE ATROPHY [None]
  - MYOCARDIAL INFARCTION [None]
  - NAUSEA [None]
  - PAIN [None]
  - WEIGHT DECREASED [None]
